FAERS Safety Report 16046423 (Version 1)
Quarter: 2019Q1

REPORT INFORMATION
  Report Type: Spontaneous
  Country: US (occurrence: US)
  Receive Date: 20190207
  Receipt Date: 20190207
  Transmission Date: 20190418
  Serious: Yes (Life-Threatening, Hospitalization)
  Sender: FDA-Public Use
  Company Number: None

PATIENT
  Age: 70 Year
  Sex: Male
  Weight: 95 kg

DRUGS (3)
  1. EXPAREL [Suspect]
     Active Substance: BUPIVACAINE
     Indication: SHOULDER OPERATION
     Dates: start: 20190111
  2. LIDOCAINE. [Concomitant]
     Active Substance: LIDOCAINE
  3. BUPIVACAINE 0.5% [Suspect]
     Active Substance: BUPIVACAINE
     Indication: SHOULDER OPERATION
     Dates: start: 20190111

REACTIONS (1)
  - Methaemoglobinaemia [None]

NARRATIVE: CASE EVENT DATE: 20190111
